FAERS Safety Report 25514529 (Version 1)
Quarter: 2025Q3

REPORT INFORMATION
  Report Type: Spontaneous
  Country: CN (occurrence: CN)
  Receive Date: 20250703
  Receipt Date: 20250703
  Transmission Date: 20251021
  Serious: Yes (Hospitalization, Other)
  Sender: MERCK SHARP & DOHME LLC
  Company Number: CN-009507513-2302287

PATIENT
  Age: 67 Year
  Sex: Male
  Weight: 60 kg

DRUGS (3)
  1. INVANZ [Suspect]
     Active Substance: ERTAPENEM SODIUM
     Indication: Pancreatitis acute
     Dosage: LYOPHILISATE POWDER
     Route: 041
     Dates: start: 20250616, end: 20250621
  2. TIGECYCLINE [Suspect]
     Active Substance: TIGECYCLINE
     Indication: Pancreatitis acute
     Dosage: LOT # G2501011, ROUTE: INTRA-PUMP INJECTION
     Dates: start: 20250618, end: 20250618
  3. TIGECYCLINE [Suspect]
     Active Substance: TIGECYCLINE
     Indication: Pancreatitis acute
     Dosage: LOT # G2501011, ROUTE: INTRA-PUMP INJECTION
     Dates: start: 20250618, end: 20250621

REACTIONS (6)
  - Coagulopathy [Recovering/Resolving]
  - Activated partial thromboplastin time prolonged [Recovering/Resolving]
  - Prothrombin time prolonged [Recovering/Resolving]
  - Blood pressure diastolic decreased [Unknown]
  - Blood fibrinogen decreased [Recovered/Resolved]
  - Blood fibrinogen increased [Recovered/Resolved]

NARRATIVE: CASE EVENT DATE: 20250618
